FAERS Safety Report 4900805-4 (Version None)
Quarter: 2006Q1

REPORT INFORMATION
  Report Type: 
  Country: None (occurrence: None)
  Receive Date: 20060201
  Receipt Date: 20060117
  Transmission Date: 20060701
  Serious: Yes (Death, Hospitalization)
  Sender: FDA-Public Use
  Company Number: AZADE200500432

PATIENT
  Age: 73 Year
  Sex: Male
  Weight: 73 kg

DRUGS (3)
  1. AZACITIDINE (AZACITIDINE) (INJECTION) [Suspect]
     Indication: MYELODYSPLASTIC SYNDROME
     Dosage: -50 OR -100 MG/M2 EVERY OTHER DAY X 7 DAYS, SUBCUTANEOUS
     Route: 058
     Dates: start: 20051025, end: 20051031
  2. ARANESP [Concomitant]
  3. NEUPOGEN [Concomitant]

REACTIONS (19)
  - ASPIRATION [None]
  - ASTHENIA [None]
  - BLOOD BILIRUBIN INCREASED [None]
  - CEREBRAL HAEMORRHAGE [None]
  - COOMBS TEST POSITIVE [None]
  - FATIGUE [None]
  - GAMMA-GLUTAMYLTRANSFERASE INCREASED [None]
  - GENERAL PHYSICAL HEALTH DETERIORATION [None]
  - GRAND MAL CONVULSION [None]
  - HAEMOLYSIS [None]
  - HYPOTENSION [None]
  - INJECTION SITE ERYTHEMA [None]
  - INJECTION SITE INDURATION [None]
  - JAUNDICE [None]
  - MUSCULOSKELETAL STIFFNESS [None]
  - PLEURAL EFFUSION [None]
  - SUBDURAL HAEMATOMA [None]
  - THERAPY NON-RESPONDER [None]
  - TRANSFUSION REACTION [None]
